FAERS Safety Report 5635998-7 (Version None)
Quarter: 2008Q1

REPORT INFORMATION
  Report Type: 
  Country: None (occurrence: None)
  Receive Date: 20080224
  Receipt Date: 20080215
  Transmission Date: 20080703
  Serious: Yes (Other)
  Sender: FDA-Public Use
  Company Number: PHBS2008IE02211

PATIENT
  Sex: Male

DRUGS (2)
  1. EXFORGE [Suspect]
     Dosage: VALS 80 / AMLO 5 MG/DAY
     Route: 048
  2. DIOVAN [Suspect]
     Dosage: 80 MG/DAY
     Route: 048

REACTIONS (4)
  - ANXIETY [None]
  - BLOOD PRESSURE INADEQUATELY CONTROLLED [None]
  - DEPRESSION [None]
  - INSOMNIA [None]
